FAERS Safety Report 5248779-3 (Version None)
Quarter: 2007Q1

REPORT INFORMATION
  Report Type: 
  Country: None (occurrence: None)
  Receive Date: 20070228
  Receipt Date: 20060125
  Transmission Date: 20070707
  Serious: No
  Sender: FDA-Public Use
  Company Number: US-GLAXOSMITHKLINE-A0590892A

PATIENT
  Age: 19 Year
  Sex: Female

DRUGS (2)
  1. VALTREX [Suspect]
     Dosage: 500MG TWICE PER DAY
     Route: 048
     Dates: start: 20060123
  2. NO CONCURRENT MEDICATION [Concomitant]

REACTIONS (3)
  - DIARRHOEA [None]
  - DYSPNOEA [None]
  - VOMITING [None]
